FAERS Safety Report 10340711 (Version 1)
Quarter: 2014Q3

REPORT INFORMATION
  Report Type: Spontaneous
  Country: BE (occurrence: None)
  Receive Date: 20140722
  Receipt Date: 20140722
  Transmission Date: 20150326
  Serious: Yes (Death, Other)
  Sender: FDA-Public Use
  Company Number: 2014JUB00054

PATIENT
  Age: 67 Year
  Sex: Male

DRUGS (5)
  1. METHYLPREDNISOLONE (METHYLPREDNISOLONE) [Suspect]
     Active Substance: METHYLPREDNISOLONE
     Indication: IMMUNE RECONSTITUTION INFLAMMATORY SYNDROME
  2. LOPINAVIR (LOPINAVIR) [Concomitant]
     Active Substance: LOPINAVIR
  3. RITONAVIR (RITONAVIR) [Concomitant]
     Active Substance: RITONAVIR
  4. TENOFOVIR (TENOFOVIR) UNKNOWN [Suspect]
     Active Substance: TENOFOVIR
     Indication: HIV TEST POSITIVE
  5. EMTRICITABINE (EMTRICITABINE) UNKNOWN [Concomitant]
     Active Substance: EMTRICITABINE

REACTIONS (17)
  - Cytomegalovirus colitis [None]
  - Aspergillus infection [None]
  - Sepsis [None]
  - Toxicity to various agents [None]
  - Pulmonary infarction [None]
  - Tubulointerstitial nephritis [None]
  - Enterococcal infection [None]
  - Myocardiac abscess [None]
  - Adrenal atrophy [None]
  - Pericardial effusion [None]
  - Multi-organ failure [None]
  - Lung abscess [None]
  - Lung infection pseudomonal [None]
  - Enterobacter infection [None]
  - Lung infection [None]
  - Cytomegalovirus infection [None]
  - Renal tubular necrosis [None]
